FAERS Safety Report 6201835-5 (Version None)
Quarter: 2009Q2

REPORT INFORMATION
  Report Type: 
  Country: None (occurrence: None)
  Receive Date: 20090526
  Receipt Date: 20090518
  Transmission Date: 20091009
  Serious: Yes (Other)
  Sender: FDA-Public Use
  Company Number: US-ASTRAZENECA-2009AC01326

PATIENT
  Age: 36 Year
  Sex: Female

DRUGS (19)
  1. PROPOFOL [Suspect]
     Indication: SEDATION
     Dosage: LATER THE DOSAGE WAS INCREASED
     Route: 042
  2. MIDAZOLAM HCL [Concomitant]
     Indication: SEDATION
     Dosage: DOSE INCREASED LATER
     Route: 042
  3. FENTANYL [Concomitant]
     Indication: SEDATION
     Dosage: INCREASED TO 300 UG/HR
  4. CEFTRIAXONE [Concomitant]
     Indication: EVIDENCE BASED TREATMENT
     Route: 042
  5. VANCOMYCIN HCL [Concomitant]
     Indication: EVIDENCE BASED TREATMENT
     Route: 042
  6. MOXIFLOXACIN HCL [Concomitant]
     Indication: EVIDENCE BASED TREATMENT
     Route: 042
  7. PIPERACILLIN SODIUM AND TAZOBACTAM SODIUM [Concomitant]
     Indication: EVIDENCE BASED TREATMENT
     Route: 042
  8. MICAFUNGIN [Concomitant]
     Indication: EVIDENCE BASED TREATMENT
     Route: 042
  9. VASOPRESSIN [Concomitant]
     Route: 042
  10. METHADONE HCL [Concomitant]
  11. PHENYTOIN SODIUM [Concomitant]
  12. GABAPENTIN [Concomitant]
  13. INSULIN GLARGINE [Concomitant]
     Route: 058
  14. ALPRAZOLAM [Concomitant]
  15. OLANZAPINE [Concomitant]
  16. QUETIAPINE FUMARATE [Concomitant]
  17. CITALOPRAM HYDROBROMIDE [Concomitant]
  18. NOREPINEPHRINE BITARTRATE [Concomitant]
     Route: 042
  19. NOREPINEPHRINE BITARTRATE [Concomitant]
     Route: 042

REACTIONS (1)
  - PROPOFOL INFUSION SYNDROME [None]
